FAERS Safety Report 7181453-5 (Version None)
Quarter: 2010Q4

REPORT INFORMATION
  Report Type: 
  Country: None (occurrence: None)
  Receive Date: 20101221
  Receipt Date: 20100423
  Transmission Date: 20110411
  Serious: No
  Sender: FDA-Public Use
  Company Number: US-AMGEN-KDL408324

PATIENT

DRUGS (3)
  1. ENBREL [Suspect]
     Indication: RHEUMATOID ARTHRITIS
     Dosage: 50 MG, QWK
     Route: 058
     Dates: start: 20070622
  2. LEFLUNOMIDE [Concomitant]
     Dosage: 10 MG, QD
  3. HYDROXYCHLOROQUINE SULFATE [Concomitant]
     Dosage: 400 MG, QD

REACTIONS (1)
  - INJECTION SITE PAIN [None]
